FAERS Safety Report 7352764-5 (Version None)
Quarter: 2011Q1

REPORT INFORMATION
  Report Type: 
  Country: None (occurrence: None)
  Receive Date: 20110304
  Receipt Date: 20100528
  Transmission Date: 20110831
  Serious: Yes (Hospitalization, Other)
  Sender: FDA-Public Use
  Company Number: JP- 2009 0046

PATIENT
  Age: 80 Year
  Sex: Male

DRUGS (2)
  1. HISTOACRYL (N-BUTYL-W-CYANOARYLATE) [Concomitant]
  2. LIPIODOL (ETHIODIZED OIL) [Suspect]
     Indication: THERAPEUTIC EMBOLISATION
     Dosage: INTAKE RATE: 1/1; INTRA-ARTERIAL
     Route: 013

REACTIONS (1)
  - DUODENAL ULCER HAEMORRHAGE [None]
